FAERS Safety Report 6316386-7 (Version None)
Quarter: 2009Q3

REPORT INFORMATION
  Report Type: 
  Country: None (occurrence: None)
  Receive Date: 20090820
  Receipt Date: 20090810
  Transmission Date: 20100115
  Serious: Yes (Life-Threatening)
  Sender: FDA-Public Use
  Company Number: B0581663A

PATIENT
  Sex: Female
  Weight: 57 kg

DRUGS (2)
  1. ARIXTRA [Suspect]
     Indication: THROMBOSIS PROPHYLAXIS
     Dosage: 2.5MG PER DAY
     Route: 058
     Dates: start: 20090623, end: 20090628
  2. KARDEGIC [Concomitant]
     Indication: CEREBROVASCULAR ACCIDENT
     Dosage: 75MG PER DAY
     Route: 048
     Dates: end: 20090628

REACTIONS (3)
  - HAEMATOMA [None]
  - INCISION SITE HAEMATOMA [None]
  - INCISION SITE HAEMORRHAGE [None]
